FAERS Safety Report 17376853 (Version 1)
Quarter: 2020Q1

REPORT INFORMATION
  Report Type: Spontaneous
  Country: US (occurrence: US)
  Receive Date: 20200122
  Receipt Date: 20200122
  Transmission Date: 20200409
  Serious: No
  Sender: FDA-Public Use
  Company Number: None

PATIENT
  Age: 50 Year
  Sex: Male

DRUGS (1)
  1. MAYZENT [Suspect]
     Active Substance: SIPONIMOD
     Route: 048
     Dates: start: 20200118, end: 20200120

REACTIONS (3)
  - Head discomfort [None]
  - Blood pressure fluctuation [None]
  - Heart rate abnormal [None]

NARRATIVE: CASE EVENT DATE: 20200122
